APPROVED DRUG PRODUCT: PREDNISOLONE
Active Ingredient: PREDNISOLONE
Strength: 5MG
Dosage Form/Route: TABLET;ORAL
Application: A080351 | Product #002
Applicant: PANRAY CORP SUB ORMONT DRUG AND CHEMICAL CO INC
Approved: Approved Prior to Jan 1, 1982 | RLD: No | RS: No | Type: DISCN